FAERS Safety Report 6719532-6 (Version None)
Quarter: 2010Q2

REPORT INFORMATION
  Report Type: 
  Country: None (occurrence: None)
  Receive Date: 20100510
  Receipt Date: 20100510
  Transmission Date: 20101027
  Serious: Yes (Other)
  Sender: FDA-Public Use
  Company Number: None

PATIENT
  Age: 56 Year
  Sex: Male
  Weight: 84.369 kg

DRUGS (2)
  1. LEVAQUIN [Suspect]
     Indication: POSTOPERATIVE CARE
     Dates: start: 20100505, end: 20100505
  2. LEVAQUIN [Suspect]
     Indication: PROPHYLAXIS
     Dates: start: 20100505, end: 20100505

REACTIONS (9)
  - ARTHRALGIA [None]
  - BURNING SENSATION [None]
  - DISTURBANCE IN ATTENTION [None]
  - GAIT DISTURBANCE [None]
  - HEADACHE [None]
  - INSOMNIA [None]
  - PARAESTHESIA [None]
  - RASH GENERALISED [None]
  - RASH PRURITIC [None]
